FAERS Safety Report 15742617 (Version 4)
Quarter: 2019Q1

REPORT INFORMATION
  Report Type: Report from Study
  Country: DE (occurrence: DE)
  Receive Date: 20181219
  Receipt Date: 20190209
  Transmission Date: 20190417
  Serious: Yes (Death, Life-Threatening, Hospitalization, Other)
  Sender: FDA-Public Use
  Company Number: DE-BRISTOL-MYERS SQUIBB COMPANY-BMS-2018-117471

PATIENT
  Age: 73 Year
  Sex: Male

DRUGS (2)
  1. NIVOLUMAB [Suspect]
     Active Substance: NIVOLUMAB
     Indication: TRANSITIONAL CELL CARCINOMA
     Dosage: 222 MG, UNK
     Route: 065
     Dates: start: 20180228
  2. IPILIMUMAB [Suspect]
     Active Substance: IPILIMUMAB
     Indication: TRANSITIONAL CELL CARCINOMA
     Dosage: 74 MG, UNK
     Route: 065
     Dates: start: 20180425

REACTIONS (6)
  - Septic shock [Unknown]
  - Pneumonitis [Fatal]
  - Acute kidney injury [Unknown]
  - Leukopenia [Unknown]
  - Immune-mediated hepatitis [Not Recovered/Not Resolved]
  - Salmonellosis [Not Recovered/Not Resolved]

NARRATIVE: CASE EVENT DATE: 20181211
